FAERS Safety Report 5429176-4 (Version None)
Quarter: 2007Q3

REPORT INFORMATION
  Report Type: 
  Country: None (occurrence: None)
  Receive Date: 20070827
  Receipt Date: 20070818
  Transmission Date: 20080115
  Serious: Yes (Other)
  Sender: FDA-Public Use
  Company Number: 2007SP015857

PATIENT
  Age: 55 Year
  Sex: Male

DRUGS (2)
  1. PEG-INTRON [Suspect]
     Indication: HEPATITIS C
     Dosage: SC
     Route: 058
     Dates: start: 20070511, end: 20070720
  2. REBETOL [Suspect]
     Indication: HEPATITIS C
     Dosage: PO
     Route: 048
     Dates: start: 20070511, end: 20070720

REACTIONS (10)
  - ANAEMIA [None]
  - ASTHENIA [None]
  - DEHYDRATION [None]
  - FEELING ABNORMAL [None]
  - GAIT DISTURBANCE [None]
  - LETHARGY [None]
  - MALAISE [None]
  - NAUSEA [None]
  - SKIN DISCOLOURATION [None]
  - VIRAL LOAD INCREASED [None]
